FAERS Safety Report 7433978-2 (Version None)
Quarter: 2011Q2

REPORT INFORMATION
  Report Type: 
  Country: None (occurrence: None)
  Receive Date: 20110425
  Receipt Date: 20110419
  Transmission Date: 20111010
  Serious: No
  Sender: FDA-Public Use
  Company Number: US-B.I. PHARMACEUTICALS,INC./RIDGEFIELD-2011-BP-07365BP

PATIENT
  Sex: Female

DRUGS (7)
  1. LIDOCAINE [Concomitant]
     Route: 048
  2. NORVASC [Concomitant]
     Route: 048
  3. HYDROCHLOROTHIAZIDE [Concomitant]
     Route: 048
  4. LEVOTHYROXINE SODIUM [Concomitant]
     Route: 048
  5. PRADAXA [Suspect]
     Indication: ATRIAL FIBRILLATION
     Dosage: 300 MG
     Route: 048
     Dates: start: 20110201
  6. METOPROLOL [Concomitant]
     Route: 048
  7. NEXIUM [Concomitant]
     Route: 048

REACTIONS (3)
  - ODYNOPHAGIA [None]
  - CHEST DISCOMFORT [None]
  - DYSPHAGIA [None]
